FAERS Safety Report 4270782-0 (Version None)
Quarter: 2004Q1

REPORT INFORMATION
  Report Type: 
  Country: None (occurrence: None)
  Receive Date: 20040113
  Receipt Date: 20040102
  Transmission Date: 20041129
  Serious: Yes (Hospitalization)
  Sender: FDA-Public Use
  Company Number: US-JNJFOC-20040100695

PATIENT
  Age: 43 Year
  Sex: Male
  Weight: 97.0698 kg

DRUGS (7)
  1. INFLIXIMAB (INFLIXIMAB, RECOMBINANT) LYOPHILIZED POWDER [Suspect]
     Indication: CROHN'S DISEASE
     Dosage: 5 MG, KG, INTRAVENOUS
     Route: 042
     Dates: start: 20010910
  2. MESALAZINE (MESALAZINE) [Concomitant]
  3. NARCOTIC ANALGESIC (ANALGESICS) [Concomitant]
  4. BUDESONIDE (BUDESONIDE) [Concomitant]
  5. 6-MERCAPTOPURINE (MERCAPTROPURINE) [Concomitant]
  6. SULFASALAZINE [Concomitant]
  7. ANTIBIOTIC (ANTIBIOTICS) [Concomitant]

REACTIONS (2)
  - ABDOMINAL HERNIA [None]
  - RASH [None]
